FAERS Safety Report 24845309 (Version 2)
Quarter: 2025Q1

REPORT INFORMATION
  Report Type: Spontaneous
  Country: PT (occurrence: PT)
  Receive Date: 20250115
  Receipt Date: 20250117
  Transmission Date: 20250409
  Serious: Yes (Death, Hospitalization, Other)
  Sender: ALEXION PHARMACEUTICALS
  Company Number: PT-STADA-01345071

PATIENT
  Age: 59 Year

DRUGS (10)
  1. FULVESTRANT [Suspect]
     Active Substance: FULVESTRANT
     Indication: Invasive lobular breast carcinoma
     Dosage: 500 MILLIGRAM, QMONTH
     Route: 065
  2. FULVESTRANT [Suspect]
     Active Substance: FULVESTRANT
     Indication: Intestinal metastasis
     Dosage: 500 MILLIGRAM, QMONTH
     Route: 065
  3. FULVESTRANT [Suspect]
     Active Substance: FULVESTRANT
     Indication: Metastases to gastrointestinal tract
     Dosage: 500 MILLIGRAM, QMONTH
     Route: 065
  4. FULVESTRANT [Suspect]
     Active Substance: FULVESTRANT
     Dosage: 500 MILLIGRAM, QMONTH
     Route: 065
  5. PALBOCICLIB [Concomitant]
     Active Substance: PALBOCICLIB
     Indication: Invasive lobular breast carcinoma
     Dosage: 125 MG DAILY
     Route: 065
  6. PALBOCICLIB [Concomitant]
     Active Substance: PALBOCICLIB
     Indication: Intestinal metastasis
     Dosage: 125 MG DAILY
     Route: 065
  7. PALBOCICLIB [Concomitant]
     Active Substance: PALBOCICLIB
     Indication: Metastases to gastrointestinal tract
  8. LETROZOLE [Concomitant]
     Active Substance: LETROZOLE
     Indication: Invasive lobular breast carcinoma
     Route: 065
  9. LETROZOLE [Concomitant]
     Active Substance: LETROZOLE
     Route: 065
  10. LETROZOLE [Concomitant]
     Active Substance: LETROZOLE

REACTIONS (3)
  - Hepatotoxicity [Fatal]
  - Malignant neoplasm progression [Fatal]
  - Drug ineffective [Fatal]
